FAERS Safety Report 10469129 (Version 1)
Quarter: 2014Q3

REPORT INFORMATION
  Report Type: Spontaneous
  Country: US (occurrence: None)
  Receive Date: 20140829
  Receipt Date: 20140829
  Transmission Date: 20150326
  Serious: Yes (Other)
  Sender: FDA-Public Use
  Company Number: 2014-01247

PATIENT
  Age: 49 Year
  Sex: Female
  Weight: 73 kg

DRUGS (2)
  1. OXYCODONE/ACETAMINOPHEN [Suspect]
     Active Substance: ACETAMINOPHEN\OXYCODONE\OXYCODONE HYDROCHLORIDE
     Indication: PAIN MANAGEMENT
     Dates: start: 2007
  2. KADIAN [Suspect]
     Active Substance: MORPHINE SULFATE
     Indication: PAIN MANAGEMENT
     Route: 048
     Dates: start: 2007

REACTIONS (7)
  - Violence-related symptom [None]
  - Drug ineffective [None]
  - Hallucination, auditory [None]
  - Feeling abnormal [None]
  - Anger [None]
  - Lethargy [None]
  - Aggression [None]

NARRATIVE: CASE EVENT DATE: 201308
